FAERS Safety Report 5252992-9 (Version None)
Quarter: 2007Q1

REPORT INFORMATION
  Report Type: 
  Country: None (occurrence: None)
  Receive Date: 20070227
  Receipt Date: 20070210
  Transmission Date: 20070707
  Serious: Yes (Other)
  Sender: FDA-Public Use
  Company Number: 15703

PATIENT
  Age: 40 Year
  Sex: Male

DRUGS (1)
  1. METHOTREXATE [Suspect]
     Indication: SQUAMOUS CELL CARCINOMA

REACTIONS (6)
  - ERYTHEMA [None]
  - LEUKOPENIA [None]
  - PYREXIA [None]
  - RASH MACULAR [None]
  - STOMATITIS [None]
  - THROMBOCYTOPENIA [None]
